FAERS Safety Report 10024368 (Version 1)
Quarter: 2014Q1

REPORT INFORMATION
  Report Type: Report from Study
  Country: US (occurrence: US)
  Receive Date: 20140320
  Receipt Date: 20140320
  Transmission Date: 20141002
  Serious: No
  Sender: FDA-Public Use
  Company Number: PHEH2014US005389

PATIENT
  Sex: Female

DRUGS (3)
  1. TASIGNA [Suspect]
     Indication: CHRONIC MYELOID LEUKAEMIA
     Dosage: 300 MG, BID
     Route: 048
     Dates: start: 20131008
  2. HYDROCHLOROTHIAZIDE [Concomitant]
     Dosage: UNK UKN, UNK
  3. OMEPRAZOLE [Concomitant]
     Dosage: UNK UKN, UNK

REACTIONS (1)
  - Rash pruritic [Recovering/Resolving]
